FAERS Safety Report 7541807-1 (Version None)
Quarter: 2011Q2

REPORT INFORMATION
  Report Type: 
  Country: None (occurrence: None)
  Receive Date: 20110524
  Receipt Date: 20110317
  Transmission Date: 20111010
  Serious: No
  Sender: FDA-Public Use
  Company Number: 029527

PATIENT
  Age: 48 Year
  Sex: Female

DRUGS (1)
  1. CIMZIA [Suspect]
     Dosage: 400 MG, ON INDUCTION DOSE SUBCUTANEOUS
     Route: 058

REACTIONS (4)
  - ANXIETY [None]
  - HEART RATE INCREASED [None]
  - CHEST DISCOMFORT [None]
  - INJECTION SITE DISCOLOURATION [None]
